FAERS Safety Report 9306589 (Version 1)
Quarter: 2013Q2

REPORT INFORMATION
  Report Type: Spontaneous
  Country: US (occurrence: None)
  Receive Date: 20130523
  Receipt Date: 20130523
  Transmission Date: 20140414
  Serious: Yes (Other)
  Sender: FDA-Public Use
  Company Number: None

PATIENT
  Age: 63 Year
  Sex: Female
  Weight: 114.76 kg

DRUGS (1)
  1. METHYLPREDNISOLONE [Suspect]
     Indication: MYOSITIS
     Dosage: 80 MG PRN IM
     Route: 030
     Dates: start: 20130221, end: 20130221

REACTIONS (3)
  - Product contamination [None]
  - Aspergillus test positive [None]
  - Injection site infection [None]
